FAERS Safety Report 8308821-X (Version None)
Quarter: 2012Q2

REPORT INFORMATION
  Report Type: 
  Country: None (occurrence: None)
  Receive Date: 20120424
  Receipt Date: 20120413
  Transmission Date: 20120825
  Serious: Yes (Hospitalization, Other)
  Sender: FDA-Public Use
  Company Number: US-ACTELION-A-US2011-47828

PATIENT

DRUGS (1)
  1. TRACLEER [Suspect]
     Indication: PULMONARY ARTERIAL HYPERTENSION
     Dosage: UNK
     Route: 048
     Dates: start: 20110331

REACTIONS (9)
  - HEPATIC STEATOSIS [None]
  - CHEST PAIN [None]
  - PANIC ATTACK [None]
  - FATIGUE [None]
  - PAIN [None]
  - KNEE ARTHROPLASTY [None]
  - INFECTION [None]
  - DYSPNOEA [None]
  - GAIT DISTURBANCE [None]
